FAERS Safety Report 16037793 (Version 1)
Quarter: 2019Q1

REPORT INFORMATION
  Report Type: Spontaneous
  Country: JP (occurrence: JP)
  Receive Date: 20190305
  Receipt Date: 20190305
  Transmission Date: 20190418
  Serious: Yes (Other)
  Sender: FDA-Public Use
  Company Number: JP-PFIZER INC-2019088500

PATIENT
  Age: 78 Year
  Sex: Male

DRUGS (12)
  1. LUNESTA [Concomitant]
     Active Substance: ESZOPICLONE
  2. CILOSTAZOL. [Concomitant]
     Active Substance: CILOSTAZOL
  3. MEILAX [Concomitant]
     Active Substance: ETHYL LOFLAZEPATE
  4. LYRICA [Suspect]
     Active Substance: PREGABALIN
     Dosage: 450 MG, DAILY
     Route: 048
     Dates: start: 20190122
  5. BELSOMRA [Concomitant]
     Active Substance: SUVOREXANT
  6. ALPRAZOLAM. [Concomitant]
     Active Substance: ALPRAZOLAM
  7. LYRICA [Suspect]
     Active Substance: PREGABALIN
     Indication: BURNING MOUTH SYNDROME
     Dosage: 150 MG, DAILY
     Route: 048
     Dates: start: 20181105
  8. PITAVASTATIN. [Concomitant]
     Active Substance: PITAVASTATIN CALCIUM
  9. NEXIUM [Concomitant]
     Active Substance: ESOMEPRAZOLE MAGNESIUM
  10. NEUROTROPIN [RABBIT VACCINIA EXTRACT] [Concomitant]
  11. CYMBALTA [Concomitant]
     Active Substance: DULOXETINE HYDROCHLORIDE
  12. ONGLYZA [Concomitant]
     Active Substance: SAXAGLIPTIN HYDROCHLORIDE

REACTIONS (7)
  - Loss of consciousness [Recovered/Resolved]
  - Dizziness [Recovering/Resolving]
  - Somnolence [Recovering/Resolving]
  - Pain [Unknown]
  - Product use in unapproved indication [Unknown]
  - Constipation [Recovering/Resolving]
  - Feeling abnormal [Unknown]

NARRATIVE: CASE EVENT DATE: 20190216
